FAERS Safety Report 10073223 (Version 4)
Quarter: 2015Q2

REPORT INFORMATION
  Report Type: Spontaneous
  Country: US (occurrence: US)
  Receive Date: 20140411
  Receipt Date: 20150612
  Transmission Date: 20150821
  Serious: Yes (Hospitalization, Other)
  Sender: FDA-Public Use
  Company Number: US-GLAXOSMITHKLINE-A1068241A

PATIENT
  Age: 68 Year
  Sex: Female

DRUGS (2)
  1. XANAX [Concomitant]
     Active Substance: ALPRAZOLAM
  2. ADVAIR HFA [Suspect]
     Active Substance: FLUTICASONE PROPIONATE\SALMETEROL XINAFOATE
     Indication: ASTHMA
     Dosage: 250/50 MCG.
     Route: 055
     Dates: start: 20081216

REACTIONS (20)
  - Back pain [Unknown]
  - Dysphemia [Not Recovered/Not Resolved]
  - Incontinence [Recovered/Resolved]
  - Therapy cessation [Unknown]
  - Road traffic accident [Recovered/Resolved]
  - Joint injury [Recovering/Resolving]
  - Neck injury [Recovering/Resolving]
  - Eye infection [Not Recovered/Not Resolved]
  - Urinary tract infection bacterial [Recovered/Resolved]
  - Memory impairment [Not Recovered/Not Resolved]
  - Peripheral swelling [Not Recovered/Not Resolved]
  - Bacteraemia [Recovered/Resolved]
  - Pulmonary oedema [Not Recovered/Not Resolved]
  - Head injury [Recovering/Resolving]
  - Concussion [Unknown]
  - Crying [Not Recovered/Not Resolved]
  - Fall [Not Recovered/Not Resolved]
  - Balance disorder [Not Recovered/Not Resolved]
  - Blister [Not Recovered/Not Resolved]
  - Treatment noncompliance [Unknown]

NARRATIVE: CASE EVENT DATE: 20130628
